FAERS Safety Report 16721574 (Version 1)
Quarter: 2019Q3

REPORT INFORMATION
  Report Type: Spontaneous
  Country: US (occurrence: US)
  Receive Date: 20190820
  Receipt Date: 20190820
  Transmission Date: 20191005
  Serious: Yes (Other)
  Sender: FDA-Public Use
  Company Number: US-ELI_LILLY_AND_COMPANY-US201908005105

PATIENT
  Sex: Female

DRUGS (2)
  1. HUMALOG [Suspect]
     Active Substance: INSULIN LISPRO
     Indication: TYPE 1 DIABETES MELLITUS
     Dosage: UNK, PRN (1 UNIT PER 10 CARBS)
     Route: 065
     Dates: start: 2006
  2. BASAGLAR [Suspect]
     Active Substance: INSULIN GLARGINE
     Indication: TYPE 1 DIABETES MELLITUS
     Dosage: 31 U, DAILY
     Route: 065

REACTIONS (4)
  - Blood glucose increased [Recovered/Resolved]
  - Urinary tract infection [Recovered/Resolved]
  - Malaise [Recovered/Resolved]
  - Coeliac disease [Unknown]

NARRATIVE: CASE EVENT DATE: 2018
